FAERS Safety Report 11046908 (Version 1)
Quarter: 2015Q2

REPORT INFORMATION
  Report Type: Spontaneous
  Country: US (occurrence: US)
  Receive Date: 20150420
  Receipt Date: 20150420
  Transmission Date: 20150821
  Serious: Yes (Other)
  Sender: FDA-Public Use
  Company Number: US-009507513-1504USA015650

PATIENT

DRUGS (1)
  1. PROPECIA [Suspect]
     Active Substance: FINASTERIDE
     Dosage: UNK
     Route: 048
     Dates: start: 20091116

REACTIONS (6)
  - Prostate cancer [Unknown]
  - Gynaecomastia [Unknown]
  - Sexual dysfunction [Unknown]
  - Depression [Unknown]
  - Erectile dysfunction [Unknown]
  - Cognitive disorder [Unknown]
